FAERS Safety Report 7969186-6 (Version None)
Quarter: 2011Q4

REPORT INFORMATION
  Report Type: 
  Country: None (occurrence: None)
  Receive Date: 20111209
  Receipt Date: 20111118
  Transmission Date: 20120403
  Serious: Yes (Life-Threatening, Hospitalization, Other)
  Sender: FDA-Public Use
  Company Number: US-ROCHE-1005328

PATIENT
  Age: 74 Year
  Sex: Female
  Weight: 86 kg

DRUGS (4)
  1. AVASTIN [Suspect]
     Indication: OVARIAN EPITHELIAL CANCER
     Dosage: 15MG/KG IV OVER 30-90 MIN ON DAY 1. DATE OF LAST DOSE PRIOR TO SAE: 08/SEP/2011
     Route: 042
     Dates: start: 20110616
  2. DOCETAXEL [Suspect]
     Indication: OVARIAN EPITHELIAL CANCER
     Dosage: 75 MG/M2 IV OVER 1 HR ON DAY 1. DATE OF LAST DOSE PRIOR TO SAE: 08/SEP/2011
     Route: 042
     Dates: start: 20110616
  3. PACLITAXEL [Suspect]
     Indication: OVARIAN EPITHELIAL CANCER
     Dosage: 175MG/M2 IV OVER 3 HRS ON DAY 1. DATE OF LAST DOSE PRIOR TO SAE: 27/JUL/2011
     Route: 042
     Dates: start: 20110616
  4. CARBOPLATIN [Suspect]
     Indication: OVARIAN EPITHELIAL CANCER
     Dosage: AUC 5 IV OVER 30 MIN ON DAY 1. DATE OF LAST DOSE PRIOR TO SAE: 08/SEP/2011
     Route: 042
     Dates: start: 20110616

REACTIONS (5)
  - ENCEPHALOPATHY [None]
  - HYPERTENSION [None]
  - SYNCOPE [None]
  - MUSCULAR WEAKNESS [None]
  - MENTAL STATUS CHANGES [None]
